FAERS Safety Report 12070477 (Version 6)
Quarter: 2017Q3

REPORT INFORMATION
  Report Type: Spontaneous
  Country: FR (occurrence: FR)
  Receive Date: 20160211
  Receipt Date: 20170721
  Transmission Date: 20171127
  Serious: Yes (Death)
  Sender: FDA-Public Use
  Company Number: FR-JNJFOC-20160205620

PATIENT
  Age: 35 Year
  Sex: Male
  Weight: 70 kg

DRUGS (1)
  1. YONDELIS [Suspect]
     Active Substance: TRABECTEDIN
     Indication: SARCOMA
     Dosage: TOTAL DOSE 2.55MG
     Route: 065
     Dates: start: 20151118, end: 20151118

REACTIONS (4)
  - Pancytopenia [Fatal]
  - Hepatitis acute [Fatal]
  - Hepatic failure [Fatal]
  - Sepsis [Fatal]

NARRATIVE: CASE EVENT DATE: 20151124
